FAERS Safety Report 8795208 (Version 2)
Quarter: 2012Q4

REPORT INFORMATION
  Report Type: 
  Country: US (occurrence: US)
  Receive Date: 20120917
  Receipt Date: 20121018
  Transmission Date: 20130627
  Serious: Yes (Death)
  Sender: FDA-Public Use
  Company Number: US-ROCHE-1128615

PATIENT
  Sex: Female

DRUGS (1)
  1. AVASTIN [Suspect]
     Indication: CERVIX CARCINOMA
     Route: 065
     Dates: start: 20090716, end: 20090716

REACTIONS (1)
  - Disease progression [Fatal]
